FAERS Safety Report 4954344-5 (Version None)
Quarter: 2006Q1

REPORT INFORMATION
  Report Type: 
  Country: None (occurrence: None)
  Receive Date: 20060327
  Receipt Date: 20060316
  Transmission Date: 20060701
  Serious: Yes (Other)
  Sender: FDA-Public Use
  Company Number: US-JNJFOC-20060304250

PATIENT
  Sex: Female

DRUGS (22)
  1. INFLIXIMAB [Suspect]
     Indication: RHEUMATOID ARTHRITIS
     Route: 042
  2. ARAVA [Concomitant]
  3. DITROPAN [Concomitant]
  4. HUMULIN [Concomitant]
  5. HUMULIN [Concomitant]
  6. LISINOPRIL [Concomitant]
  7. METOLAZONE [Concomitant]
  8. MULTI-VITAMIN [Concomitant]
  9. MULTI-VITAMIN [Concomitant]
  10. MULTI-VITAMIN [Concomitant]
  11. MULTI-VITAMIN [Concomitant]
  12. MULTI-VITAMIN [Concomitant]
  13. MULTI-VITAMIN [Concomitant]
  14. MULTI-VITAMIN [Concomitant]
  15. MULTI-VITAMIN [Concomitant]
  16. AMITRIPTYLINE [Concomitant]
  17. TUMS [Concomitant]
  18. VERAPAMIL [Concomitant]
  19. MACRODANTIN [Concomitant]
  20. LIPITOR [Concomitant]
  21. ACTONEL [Concomitant]
  22. ASCORBIC ACID [Concomitant]

REACTIONS (1)
  - B-CELL LYMPHOMA [None]
